FAERS Safety Report 17399970 (Version 2)
Quarter: 2020Q1

REPORT INFORMATION
  Report Type: Spontaneous
  Country: US (occurrence: US)
  Receive Date: 20200211
  Receipt Date: 20200220
  Transmission Date: 20200409
  Serious: Yes (Other)
  Sender: FDA-Public Use
  Company Number: US-ASTRAZENECA-2020SE19269

PATIENT
  Age: 737 Month
  Sex: Female
  Weight: 90.7 kg

DRUGS (15)
  1. CARVEDILOL. [Concomitant]
     Active Substance: CARVEDILOL
     Route: 048
  2. BYDUREON BCISE [Suspect]
     Active Substance: EXENATIDE
     Indication: TYPE 2 DIABETES MELLITUS
     Route: 058
     Dates: start: 2019
  3. MAGNESIUM [Concomitant]
     Active Substance: MAGNESIUM
     Dates: start: 2015
  4. BUPROPRION [Concomitant]
     Active Substance: BUPROPION
     Indication: SMOKING CESSATION THERAPY
     Route: 048
     Dates: start: 2000
  5. MELOXICAM. [Concomitant]
     Active Substance: MELOXICAM
     Indication: ARTHRALGIA
     Dosage: 15MG TWO A COUPLE OF TIMES PER WEEK FOR PAIN IN KNEES
  6. JANUMET XR [Concomitant]
     Active Substance: METFORMIN HYDROCHLORIDE\SITAGLIPTIN PHOSPHATE
     Indication: TYPE 2 DIABETES MELLITUS
     Dosage: DAILY
     Route: 048
  7. LEVOTHYROXIN [Concomitant]
     Active Substance: LEVOTHYROXINE
     Indication: THYROID DISORDER
     Dates: start: 1995
  8. MULTIPVITAMIN [Concomitant]
  9. LIPITOR [Concomitant]
     Active Substance: ATORVASTATIN CALCIUM
     Route: 048
     Dates: start: 2009
  10. VITAMIN D3 [Concomitant]
     Active Substance: CHOLECALCIFEROL
  11. METFORMIN [Concomitant]
     Active Substance: METFORMIN HYDROCHLORIDE
  12. BYDUREON [Suspect]
     Active Substance: EXENATIDE
     Indication: TYPE 2 DIABETES MELLITUS
     Route: 058
     Dates: end: 2019
  13. IRBESARTAN. [Concomitant]
     Active Substance: IRBESARTAN
     Dosage: 75 DAILY
     Route: 047
  14. ZOPHRAN [Concomitant]
     Indication: NAUSEA
     Dosage: 4.0MG AS REQUIRED
  15. BIOTIN [Concomitant]
     Active Substance: BIOTIN
     Indication: ALOPECIA

REACTIONS (8)
  - Alopecia [Recovering/Resolving]
  - Injection site extravasation [Unknown]
  - Contusion [Not Recovered/Not Resolved]
  - Injection site haemorrhage [Unknown]
  - Meniere^s disease [Unknown]
  - Blood pressure increased [Unknown]
  - Product dose omission [Unknown]
  - Device issue [Unknown]

NARRATIVE: CASE EVENT DATE: 201907
